FAERS Safety Report 18031622 (Version 1)
Quarter: 2020Q3

REPORT INFORMATION
  Report Type: Spontaneous
  Country: US (occurrence: US)
  Receive Date: 20200716
  Receipt Date: 20200716
  Transmission Date: 20201103
  Serious: No
  Sender: FDA-Public Use
  Company Number: US-PFIZER INC-2020271004

PATIENT
  Age: 46 Year
  Sex: Male

DRUGS (3)
  1. BRAFTOVI [Suspect]
     Active Substance: ENCORAFENIB
     Indication: NEOPLASM MALIGNANT
     Dosage: 450 MG, 1X/DAY
     Route: 048
     Dates: start: 20200625
  2. MEKTOVI [Suspect]
     Active Substance: BINIMETINIB
     Indication: NEOPLASM MALIGNANT
     Dosage: 45 MG, 1X/DAY
     Route: 048
     Dates: start: 20200625
  3. LOTREL [Concomitant]
     Active Substance: AMLODIPINE BESYLATE\BENAZEPRIL HYDROCHLORIDE
     Dosage: UNK

REACTIONS (3)
  - Visual impairment [Unknown]
  - Vision blurred [Unknown]
  - Halo vision [Unknown]

NARRATIVE: CASE EVENT DATE: 20200704
